FAERS Safety Report 17232434 (Version 2)
Quarter: 2020Q1

REPORT INFORMATION
  Report Type: Spontaneous
  Country: US (occurrence: US)
  Receive Date: 20200103
  Receipt Date: 20200330
  Transmission Date: 20200409
  Serious: No
  Sender: FDA-Public Use
  Company Number: US-SA-2019SA357257

PATIENT
  Age: 62 Year
  Sex: Male

DRUGS (3)
  1. COLLAGEN [Concomitant]
     Active Substance: COLLAGEN
     Dosage: 1 DF, QD (1 SCOOP DAILY)
  2. VITAMIN C [Concomitant]
     Active Substance: ASCORBIC ACID
     Dosage: UNK, QD
  3. DUPIXENT [Suspect]
     Active Substance: DUPILUMAB
     Indication: DERMATITIS ATOPIC
     Dosage: 300 MG, QOW
     Route: 058
     Dates: start: 20191119

REACTIONS (4)
  - Cough [Unknown]
  - Drug ineffective [Unknown]
  - Condition aggravated [Unknown]
  - Throat irritation [Unknown]

NARRATIVE: CASE EVENT DATE: 2019
